FAERS Safety Report 12581238 (Version 1)
Quarter: 2016Q3

REPORT INFORMATION
  Report Type: Spontaneous
  Country: US (occurrence: US)
  Receive Date: 20160721
  Receipt Date: 20160721
  Transmission Date: 20161109
  Serious: No
  Sender: FDA-Public Use
  Company Number: ALCN2016US004956

PATIENT
  Sex: Female

DRUGS (1)
  1. TRAVATAN Z [Suspect]
     Active Substance: TRAVOPROST
     Indication: PRODUCT USED FOR UNKNOWN INDICATION
     Route: 047

REACTIONS (7)
  - Headache [Unknown]
  - Lacrimation increased [Unknown]
  - Photophobia [Unknown]
  - Cyst [Unknown]
  - Eyelid margin crusting [Unknown]
  - Visual impairment [Unknown]
  - Dizziness [Unknown]
